FAERS Safety Report 7215955-X (Version None)
Quarter: 2011Q1

REPORT INFORMATION
  Report Type: 
  Country: None (occurrence: None)
  Receive Date: 20110107
  Receipt Date: 20110104
  Transmission Date: 20110831
  Serious: Yes (Hospitalization, Other)
  Sender: FDA-Public Use
  Company Number: US-MERCK-1006USA01069

PATIENT
  Sex: Female

DRUGS (2)
  1. FOSAMAX [Suspect]
     Indication: OSTEOPOROSIS
     Route: 048
     Dates: start: 20020517, end: 20080601
  2. FOSAMAX [Suspect]
     Route: 048
     Dates: start: 20080616, end: 20100314

REACTIONS (4)
  - CORONARY ARTERY BYPASS [None]
  - ORAL DISORDER [None]
  - FEMUR FRACTURE [None]
  - LOW TURNOVER OSTEOPATHY [None]
